FAERS Safety Report 7221164-0 (Version None)
Quarter: 2011Q1

REPORT INFORMATION
  Report Type: 
  Country: None (occurrence: None)
  Receive Date: 20110112
  Receipt Date: 20101228
  Transmission Date: 20110831
  Serious: No
  Sender: FDA-Public Use
  Company Number: US-PFIZER INC-US-WYE-H14929310

PATIENT
  Sex: Female

DRUGS (5)
  1. CITALOPRAM [Suspect]
     Dosage: UNK
  2. LORAZEPAM [Suspect]
     Indication: DEPRESSION
     Dosage: UNK
  3. LAMOTRIGINE [Suspect]
     Dosage: UNK
  4. PRISTIQ [Suspect]
     Dosage: UNK
  5. ZOLPIDEM TARTRATE [Suspect]
     Indication: SLEEP DISORDER
     Dosage: UNK

REACTIONS (5)
  - INSOMNIA [None]
  - DRUG INEFFECTIVE [None]
  - PANIC ATTACK [None]
  - STRESS [None]
  - DRUG INTERACTION [None]
